FAERS Safety Report 7453689 (Version 4)
Quarter: 2018Q3

REPORT INFORMATION
  Report Type: Report from Study
  Country: JP (occurrence: JP)
  Receive Date: 20100706
  Receipt Date: 20180716
  Transmission Date: 20181010
  Serious: Yes (Hospitalization, Other)
  Sender: FDA-Public Use
  Company Number: PHHY2010JP41370

PATIENT
  Age: 74 Year
  Sex: Female
  Weight: 62 kg

DRUGS (5)
  1. EXJADE [Suspect]
     Active Substance: DEFERASIROX
     Dosage: 1000 MG, QD
     Route: 048
     Dates: start: 20090607, end: 20091030
  2. RED CELLS MAP [Concomitant]
     Active Substance: HUMAN RED BLOOD CELL
     Indication: PRODUCT USED FOR UNKNOWN INDICATION
     Dosage: 2 U, QMO
     Dates: start: 20081113, end: 20091016
  3. EXJADE [Suspect]
     Active Substance: DEFERASIROX
     Indication: IRON OVERLOAD
     Dosage: 1000 MG, QD
     Route: 048
     Dates: start: 20081030, end: 20090530
  4. GASTER [Concomitant]
     Active Substance: FAMOTIDINE
     Indication: CHRONIC GASTRITIS
     Dosage: 20 MG, UNK
     Route: 048
     Dates: start: 20080111
  5. SELBEX [Concomitant]
     Active Substance: TEPRENONE
     Indication: CHRONIC GASTRITIS
     Dosage: 150 MG, UNK
     Dates: start: 20051205

REACTIONS (12)
  - Aspartate aminotransferase increased [Recovered/Resolved]
  - Alanine aminotransferase increased [Recovered/Resolved]
  - Pyelonephritis [Recovered/Resolved]
  - Chills [Unknown]
  - Pyelonephritis [Recovered/Resolved]
  - White blood cell count decreased [Unknown]
  - Blood alkaline phosphatase increased [Recovered/Resolved]
  - Constipation [Not Recovered/Not Resolved]
  - Pyrexia [Unknown]
  - White blood cell count increased [Recovered/Resolved]
  - Eosinophil count decreased [Recovered/Resolved]
  - White blood cell count increased [Recovered/Resolved]

NARRATIVE: CASE EVENT DATE: 20081208
